FAERS Safety Report 9026197 (Version 2)
Quarter: 2013Q1

REPORT INFORMATION
  Report Type: Spontaneous
  Country: US (occurrence: None)
  Receive Date: 20130108
  Receipt Date: 20130115
  Transmission Date: 20140127
  Serious: Yes (Other)
  Sender: FDA-Public Use
  Company Number: 2012AP004417

PATIENT
  Age: 8 Year
  Sex: Male

DRUGS (6)
  1. LITHIUM CARBONATE CAPSULES [Suspect]
     Indication: AGGRESSION
     Route: 048
  2. LISDEXAMFETAMINE [Suspect]
     Indication: PRODUCT USED FOR UNKNOWN INDICATION
  3. ARIPIPRAZOLE [Concomitant]
  4. AMFETAMINE [Concomitant]
  5. PAROXETINE [Suspect]
  6. GUANFACINE [Suspect]
     Route: 048

REACTIONS (13)
  - Dyskinesia [None]
  - Chest pain [None]
  - Hypertension [None]
  - Tachycardia [None]
  - Anxiety [None]
  - Feeling jittery [None]
  - Protrusion tongue [None]
  - Grimacing [None]
  - Logorrhoea [None]
  - Akathisia [None]
  - Dyspnoea [None]
  - Microcytic anaemia [None]
  - Agitation [None]
